FAERS Safety Report 7831081-0 (Version None)
Quarter: 2011Q4

REPORT INFORMATION
  Report Type: 
  Country: None (occurrence: None)
  Receive Date: 20111021
  Receipt Date: 20111018
  Transmission Date: 20120403
  Serious: Yes (Death, Hospitalization)
  Sender: FDA-Public Use
  Company Number: PHEH2011US06100

PATIENT
  Sex: Female

DRUGS (9)
  1. LORAZEPAM [Concomitant]
     Dosage: 0.5 MG, PRN
     Route: 048
  2. DEXAMETHASONE [Concomitant]
     Dosage: 4 MG, DAILY
  3. MORPHINE [Concomitant]
     Dosage: 30 MG, PRN
     Route: 048
  4. MS CONTIN [Concomitant]
     Dosage: 120 MG, BID
  5. CAD [Concomitant]
  6. ZOMETA [Suspect]
  7. LOVENOX [Concomitant]
     Dosage: 60 MG, DAILY
  8. CALCIUM CARBONATE [Concomitant]
  9. MORPHINE SULFATE [Concomitant]
     Dosage: 2 MG, UNK

REACTIONS (4)
  - METASTASES TO BONE [None]
  - HYPERCALCAEMIA [None]
  - NEOPLASM PROGRESSION [None]
  - NEOPLASM MALIGNANT [None]
